FAERS Safety Report 8034261-7 (Version None)
Quarter: 2012Q1

REPORT INFORMATION
  Report Type: 
  Country: None (occurrence: None)
  Receive Date: 20120110
  Receipt Date: 20120104
  Transmission Date: 20120608
  Serious: Yes (Hospitalization)
  Sender: FDA-Public Use
  Company Number: PHHY2011FR103345

PATIENT
  Sex: Male
  Weight: 50 kg

DRUGS (6)
  1. PHENOBARBITAL TAB [Concomitant]
     Dosage: 100 MG, UNK
     Route: 048
  2. STABLON [Concomitant]
     Dosage: 1 TABLET DAILY
     Route: 048
  3. ZOLEDRONOC ACID [Suspect]
     Indication: OSTEOPOROTIC FRACTURE
     Dosage: 5 MG
     Route: 042
     Dates: start: 20111014
  4. LEXOMIL [Concomitant]
     Dosage: 0.5 TABLET DAILY IN EVENING
     Route: 048
  5. GUTRON [Concomitant]
     Dosage: 2.5 MG AT 2 TABLETS 3 TIMES DAILY
  6. MODOPAR [Concomitant]
     Dosage: 125 MG, 3 TIMES DAILY
     Route: 048

REACTIONS (6)
  - CEREBELLAR SYNDROME [None]
  - DIZZINESS [None]
  - CEREBRAL VENTRICLE DILATATION [None]
  - GAIT DISTURBANCE [None]
  - NEUROLOGICAL DECOMPENSATION [None]
  - BALANCE DISORDER [None]
